FAERS Safety Report 8559826-5 (Version None)
Quarter: 2012Q3

REPORT INFORMATION
  Report Type: 
  Country: None (occurrence: None)
  Receive Date: 20120802
  Receipt Date: 20120727
  Transmission Date: 20120928
  Serious: No
  Sender: FDA-Public Use
  Company Number: US-PFIZER INC-2012182946

PATIENT
  Sex: Male
  Weight: 81.633 kg

DRUGS (2)
  1. TOVIAZ [Suspect]
     Indication: HYPERTONIC BLADDER
     Dosage: 4 MG, DAILY
     Dates: start: 20120626, end: 20120726
  2. RAPAFLO [Concomitant]
     Indication: PROSTATIC DISORDER
     Dosage: 8 MG, 1X/DAY

REACTIONS (1)
  - CONSTIPATION [None]
